FAERS Safety Report 12301575 (Version 1)
Quarter: 2016Q2

REPORT INFORMATION
  Report Type: Spontaneous
  Country: US (occurrence: US)
  Receive Date: 20160425
  Receipt Date: 20160425
  Transmission Date: 20160815
  Serious: Yes (Other)
  Sender: FDA-Public Use
  Company Number: US-ASTELLAS-2016US004034

PATIENT
  Age: 68 Year
  Sex: Male

DRUGS (2)
  1. LEXISCAN [Suspect]
     Active Substance: REGADENOSON
     Indication: SYNCOPE
     Dosage: UNK, UNKNOWN FREQ. (FOR 10-12 SEC AT 10.40 AM)
     Route: 065
     Dates: start: 20160118
  2. LEXISCAN [Suspect]
     Active Substance: REGADENOSON
     Indication: DYSPNOEA EXERTIONAL

REACTIONS (2)
  - Seizure [Not Recovered/Not Resolved]
  - Off label use [Unknown]

NARRATIVE: CASE EVENT DATE: 20160118
